FAERS Safety Report 5581132-1 (Version None)
Quarter: 2007Q4

REPORT INFORMATION
  Report Type: 
  Country: None (occurrence: None)
  Receive Date: 20071228
  Receipt Date: 20071221
  Transmission Date: 20080405
  Serious: Yes (Death)
  Sender: FDA-Public Use
  Company Number: JPI-P-002762

PATIENT
  Age: 50 Year
  Sex: Female
  Weight: 80.7403 kg

DRUGS (13)
  1. XYREM [Suspect]
     Indication: INSOMNIA
     Dosage: 4.5 GM (2.25 GM, 2 IN 1 D) ORAL ; (UNKNOWN, 2 IN 1 D) ORAL ; 4.5 GM (4.5 GM, 1 IN 1 D) ORAL ; 5 GM (
     Route: 048
     Dates: start: 20070101, end: 20070101
  2. XYREM [Suspect]
     Indication: INSOMNIA
     Dosage: 4.5 GM (2.25 GM, 2 IN 1 D) ORAL ; (UNKNOWN, 2 IN 1 D) ORAL ; 4.5 GM (4.5 GM, 1 IN 1 D) ORAL ; 5 GM (
     Route: 048
     Dates: start: 20070201, end: 20070101
  3. XYREM [Suspect]
     Indication: INSOMNIA
     Dosage: 4.5 GM (2.25 GM, 2 IN 1 D) ORAL ; (UNKNOWN, 2 IN 1 D) ORAL ; 4.5 GM (4.5 GM, 1 IN 1 D) ORAL ; 5 GM (
     Route: 048
     Dates: start: 20070101
  4. XYREM [Suspect]
     Indication: INSOMNIA
     Dosage: 4.5 GM (2.25 GM, 2 IN 1 D) ORAL ; (UNKNOWN, 2 IN 1 D) ORAL ; 4.5 GM (4.5 GM, 1 IN 1 D) ORAL ; 5 GM (
     Route: 048
     Dates: start: 20070101
  5. CLONIDINE [Concomitant]
  6. OLANZAPINE [Concomitant]
  7. ALPRAZOLAM [Concomitant]
  8. TOPIRAMATE [Concomitant]
  9. VENLAFAXINE HCL [Concomitant]
  10. ASPIRIN [Concomitant]
  11. PANTOPRAZOLE SODIUM [Concomitant]
  12. ATORVASTATIN CALCIUM [Concomitant]
  13. LEVOTHYROXIN (LEVOTHYROXINE SODIUM) [Concomitant]

REACTIONS (1)
  - DEATH [None]
